FAERS Safety Report 10966241 (Version 1)
Quarter: 2015Q1

REPORT INFORMATION
  Report Type: Spontaneous
  Country: None (occurrence: None)
  Receive Date: 20150327
  Receipt Date: 20150327
  Transmission Date: 20150721
  Serious: Yes (Life-Threatening, Hospitalization)
  Sender: FDA-Public Use
  Company Number: None

PATIENT
  Age: 41 Year
  Sex: Female
  Weight: 61.69 kg

DRUGS (13)
  1. PRISTIQ EXTENDED RELEASE [Concomitant]
     Active Substance: DESVENLAFAXINE SUCCINATE
  2. LINZESS [Concomitant]
     Active Substance: LINACLOTIDE
  3. CONCERTA [Concomitant]
     Active Substance: METHYLPHENIDATE HYDROCHLORIDE
  4. SPIRONOLACTONE. [Concomitant]
     Active Substance: SPIRONOLACTONE
  5. XANAX [Concomitant]
     Active Substance: ALPRAZOLAM
  6. LIDODERM [Concomitant]
     Active Substance: LIDOCAINE
  7. MINOCYCLINE [Suspect]
     Active Substance: MINOCYCLINE\MINOCYCLINE HYDROCHLORIDE
     Indication: ACNE
     Route: 048
     Dates: start: 20100110, end: 20131214
  8. FENTANYL TRANSDERMAL SYSTEM [Concomitant]
     Active Substance: FENTANYL
  9. PHILLIPS COLON HEALTH [Concomitant]
  10. WELLBUTRIN XL [Concomitant]
     Active Substance: BUPROPION HYDROCHLORIDE
  11. NUVIGIL [Concomitant]
     Active Substance: ARMODAFINIL
  12. NORCO [Concomitant]
     Active Substance: ACETAMINOPHEN\HYDROCODONE BITARTRATE
  13. ACETAZOLAMIDE. [Concomitant]
     Active Substance: ACETAZOLAMIDE

REACTIONS (7)
  - Eye pain [None]
  - Headache [None]
  - Photophobia [None]
  - Vision blurred [None]
  - Altered visual depth perception [None]
  - Tinnitus [None]
  - Night blindness [None]

NARRATIVE: CASE EVENT DATE: 20131214
